FAERS Safety Report 9537877 (Version 2)
Quarter: 2013Q4

REPORT INFORMATION
  Report Type: Spontaneous
  Country: US (occurrence: US)
  Receive Date: 20130919
  Receipt Date: 20131001
  Transmission Date: 20140711
  Serious: Yes (Other)
  Sender: FDA-Public Use
  Company Number: US-UCBSA-097594

PATIENT
  Sex: Female
  Weight: 53.52 kg

DRUGS (1)
  1. KEPPRA [Suspect]
     Indication: CONVULSION
     Dosage: 500 MG/ 6 DAILY, 6 TO 7 YEARS AGO

REACTIONS (1)
  - Grand mal convulsion [Recovered/Resolved]
